FAERS Safety Report 9598766 (Version 2)
Quarter: 2013Q4

REPORT INFORMATION
  Report Type: Spontaneous
  Country: US (occurrence: US)
  Receive Date: 20131004
  Receipt Date: 20131004
  Transmission Date: 20140711
  Serious: No
  Sender: FDA-Public Use
  Company Number: US-AMGEN-USASP2013019975

PATIENT
  Age: 38 Year
  Sex: Female
  Weight: 92.52 kg

DRUGS (11)
  1. ENBREL [Suspect]
     Indication: PSORIATIC ARTHROPATHY
     Dosage: 50 MG, QWK
     Route: 058
     Dates: end: 20130304
  2. HUMIRA [Concomitant]
     Dosage: UNK
     Dates: start: 20130304
  3. PHENERGAN                          /00033001/ [Concomitant]
     Dosage: 25 MG, UNK
     Route: 048
  4. PAXIL                              /00500401/ [Concomitant]
     Dosage: 10 MG, UNK
     Route: 048
  5. PREDNISONE [Concomitant]
     Dosage: 10 MG, UNK
     Route: 048
  6. LYRICA [Concomitant]
     Dosage: 100 MG, UNK
     Route: 048
  7. NAPROXEN [Concomitant]
     Dosage: 375 MG, UNK
     Route: 048
  8. PRILOSEC                           /00661201/ [Concomitant]
     Dosage: 20 MG, UNK
     Route: 048
  9. BUTALBITAL [Concomitant]
     Dosage: UNK
     Route: 048
  10. CODEINE [Concomitant]
     Dosage: UNK
     Route: 048
  11. HYDROCHLOROTHIAZIDE W/TRIAMTERENE [Concomitant]
     Dosage: 25-50 MG
     Route: 048

REACTIONS (2)
  - Drug ineffective [Unknown]
  - Psoriatic arthropathy [Unknown]
